FAERS Safety Report 16290383 (Version 1)
Quarter: 2019Q2

REPORT INFORMATION
  Report Type: Report from Study
  Country: US (occurrence: US)
  Receive Date: 20190509
  Receipt Date: 20190509
  Transmission Date: 20190711
  Serious: Yes (Hospitalization)
  Sender: FDA-Public Use
  Company Number: US-ASTELLAS-2019US016583

PATIENT
  Age: 67 Year
  Sex: Male

DRUGS (3)
  1. ENZALUTAMIDE [Interacting]
     Active Substance: ENZALUTAMIDE
     Route: 048
  2. WARFARIN [Interacting]
     Active Substance: WARFARIN
     Indication: PRODUCT USED FOR UNKNOWN INDICATION
     Dosage: UNK UNK, UNKNOWN FREQ.
     Route: 065
  3. ENZALUTAMIDE [Suspect]
     Active Substance: ENZALUTAMIDE
     Indication: PROSTATE CANCER
     Route: 048

REACTIONS (10)
  - Dizziness [Unknown]
  - Inappropriate schedule of product administration [Unknown]
  - Back pain [Recovering/Resolving]
  - Fall [Unknown]
  - Neck pain [Unknown]
  - Decreased appetite [Unknown]
  - Hyperhidrosis [Unknown]
  - Fatigue [Recovering/Resolving]
  - Hot flush [Unknown]
  - Drug interaction [Unknown]

NARRATIVE: CASE EVENT DATE: 20190408
